FAERS Safety Report 16897035 (Version 1)
Quarter: 2019Q4

REPORT INFORMATION
  Report Type: Spontaneous
  Country: US (occurrence: US)
  Receive Date: 20191009
  Receipt Date: 20191009
  Transmission Date: 20200122
  Serious: No
  Sender: FDA-Public Use
  Company Number: US-AUROBINDO-AUR-APL-2019-040583

PATIENT

DRUGS (2)
  1. GUAIFENESIN AND DEXTROMETHORPHAN HYDROBROMIDE 1200MG/60MG [Suspect]
     Active Substance: DEXTROMETHORPHAN HYDROBROMIDE\GUAIFENESIN
     Indication: NASAL CONGESTION
  2. GUAIFENESIN AND DEXTROMETHORPHAN HYDROBROMIDE 1200MG/60MG [Suspect]
     Active Substance: DEXTROMETHORPHAN HYDROBROMIDE\GUAIFENESIN
     Indication: INCREASED VISCOSITY OF UPPER RESPIRATORY SECRETION
     Dosage: UNK (ONE DOSE)
     Route: 065
     Dates: start: 20190703

REACTIONS (3)
  - Asthenia [Recovered/Resolved]
  - Dizziness [Recovered/Resolved]
  - Tremor [Recovered/Resolved]

NARRATIVE: CASE EVENT DATE: 20190703
